FAERS Safety Report 20898952 (Version 3)
Quarter: 2023Q1

REPORT INFORMATION
  Report Type: Spontaneous
  Country: US (occurrence: US)
  Receive Date: 20220601
  Receipt Date: 20230103
  Transmission Date: 20230418
  Serious: No
  Sender: FDA-Public Use
  Company Number: US-Ipsen Biopharmaceuticals, Inc.-2022-14617

PATIENT
  Age: 53 Year
  Sex: Male
  Weight: 86 kg

DRUGS (8)
  1. SOMATULINE DEPOT [Suspect]
     Active Substance: LANREOTIDE ACETATE
     Indication: Acromegaly
     Dosage: 90 MG/0.3 ML, EVERY 28 DAYS
     Route: 058
     Dates: start: 20220418
  2. SOMATULINE DEPOT [Suspect]
     Active Substance: LANREOTIDE ACETATE
     Dosage: FREQUENCY-OTHER
     Route: 058
  3. ACETAMINOPHEN [Concomitant]
     Active Substance: ACETAMINOPHEN
  4. LIDOCAINE PATCH [Concomitant]
     Active Substance: LIDOCAINE
  5. LISINOPRIL [Concomitant]
     Active Substance: LISINOPRIL
  6. PREDNISONE [Concomitant]
     Active Substance: PREDNISONE
     Indication: Secondary adrenocortical insufficiency
     Dosage: 5 MG, QDAY (ONGOING)
  7. TRAMADOL [Concomitant]
     Active Substance: TRAMADOL
  8. LANREOTIDE [Concomitant]
     Active Substance: LANREOTIDE

REACTIONS (4)
  - Diarrhoea [Recovered/Resolved]
  - Abdominal distension [Recovered/Resolved]
  - Constipation [Recovered/Resolved]
  - Off label use [Unknown]

NARRATIVE: CASE EVENT DATE: 20220419
